FAERS Safety Report 4662399-0 (Version None)
Quarter: 2005Q2

REPORT INFORMATION
  Report Type: 
  Country: None (occurrence: None)
  Receive Date: 20050512
  Receipt Date: 20050428
  Transmission Date: 20051028
  Serious: Yes (Hospitalization, Disabling)
  Sender: FDA-Public Use
  Company Number: 230005E05RUS

PATIENT
  Age: 38 Year
  Sex: Female

DRUGS (5)
  1. REBIF [Suspect]
     Indication: RELAPSING-REMITTING MULTIPLE SCLEROSIS
     Dosage: 0.5 ML, 3 IN 1 WEEKS, SUBCUTANEOUS
     Route: 058
     Dates: start: 20041215, end: 20050325
  2. DEXAMETHASONE [Concomitant]
  3. IMMUNOGLOBULINS [Concomitant]
  4. THIAMINE HCL [Concomitant]
  5. CYANOCOBALAMIN [Concomitant]

REACTIONS (3)
  - CELLULITIS [None]
  - INJECTION SITE ABSCESS [None]
  - MULTIPLE SCLEROSIS RELAPSE [None]
